FAERS Safety Report 7291635-X (Version None)
Quarter: 2011Q1

REPORT INFORMATION
  Report Type: 
  Country: None (occurrence: None)
  Receive Date: 20110209
  Receipt Date: 20110209
  Transmission Date: 20110831
  Serious: Yes (Disabling)
  Sender: FDA-Public Use
  Company Number: None

PATIENT
  Age: 71 Year
  Sex: Female
  Weight: 89.3586 kg

DRUGS (1)
  1. LEVAQUIN [Suspect]
     Indication: SINUS DISORDER
     Dosage: 1 TABLET ONCE A DAY
     Dates: start: 20110107, end: 20110112

REACTIONS (4)
  - GAIT DISTURBANCE [None]
  - ARTHRALGIA [None]
  - PAIN IN EXTREMITY [None]
  - JOINT EFFUSION [None]
